FAERS Safety Report 6069742-9 (Version None)
Quarter: 2009Q1

REPORT INFORMATION
  Report Type: 
  Country: None (occurrence: None)
  Receive Date: 20090209
  Receipt Date: 20090204
  Transmission Date: 20090719
  Serious: Yes (Other)
  Sender: FDA-Public Use
  Company Number: CA-ASTRAZENECA-2009UW03251

PATIENT
  Age: 11 Year
  Sex: Male

DRUGS (5)
  1. SYMBICORT [Suspect]
     Indication: ASTHMA
     Dosage: 200 MCG 2 PUFFS BID
     Route: 055
     Dates: start: 20070101
  2. LOVAZA [Concomitant]
  3. CENTRUM FORTE [Concomitant]
  4. SEROQUEL [Concomitant]
     Indication: BIPOLAR DISORDER
     Route: 048
     Dates: start: 20080101
  5. SINGULAIR [Concomitant]
     Dates: start: 20080801

REACTIONS (1)
  - EPISTAXIS [None]
